FAERS Safety Report 13239742 (Version 1)
Quarter: 2017Q1

REPORT INFORMATION
  Report Type: Report from Study
  Country: DE (occurrence: DE)
  Receive Date: 20170216
  Receipt Date: 20170216
  Transmission Date: 20170428
  Serious: Yes (Hospitalization)
  Sender: FDA-Public Use
  Company Number: DE-JNJFOC-20170213108

PATIENT
  Age: 31 Year
  Sex: Male
  Weight: 65 kg

DRUGS (10)
  1. REMICADE [Suspect]
     Active Substance: INFLIXIMAB
     Indication: CROHN^S DISEASE
     Route: 042
     Dates: start: 20070725
  2. REMICADE [Suspect]
     Active Substance: INFLIXIMAB
     Indication: CROHN^S DISEASE
     Route: 042
     Dates: start: 20070925
  3. ZYTRIM [Concomitant]
     Route: 065
     Dates: start: 20010109
  4. CIPROBAY [Concomitant]
     Active Substance: CIPROFLOXACIN
     Route: 065
     Dates: start: 20050301, end: 20050308
  5. FERROSANOL [Concomitant]
     Active Substance: FERROUS GLUCONATE
     Indication: ANAEMIA
     Route: 065
  6. DECORTIN [Concomitant]
     Active Substance: PREDNISONE
     Indication: CROHN^S DISEASE
     Route: 065
     Dates: start: 20041228
  7. REMICADE [Suspect]
     Active Substance: INFLIXIMAB
     Indication: CROHN^S DISEASE
     Route: 042
     Dates: start: 200706
  8. ZYTRIM [Concomitant]
     Route: 065
     Dates: start: 200001
  9. DECORTIN [Concomitant]
     Active Substance: PREDNISONE
     Indication: CROHN^S DISEASE
     Route: 065
     Dates: end: 20071014
  10. CALCIUM [Concomitant]
     Active Substance: CALCIUM
     Indication: ARTHRITIS
     Route: 065
     Dates: start: 2005

REACTIONS (1)
  - Rectal adenocarcinoma [Recovered/Resolved]

NARRATIVE: CASE EVENT DATE: 200709
